FAERS Safety Report 6257352-X (Version None)
Quarter: 2009Q3

REPORT INFORMATION
  Report Type: 
  Country: None (occurrence: None)
  Receive Date: 20090706
  Receipt Date: 20090625
  Transmission Date: 20100115
  Serious: Yes (Hospitalization, Other)
  Sender: FDA-Public Use
  Company Number: PHHO2008JP15268

PATIENT
  Sex: Male
  Weight: 79 kg

DRUGS (7)
  1. RAD 666 RAD+TAB+PTR [Suspect]
     Indication: RENAL TRANSPLANT
     Dosage: 1.5 MG, DAILY
     Route: 048
     Dates: start: 20081206, end: 20081215
  2. NEORAL [Concomitant]
     Indication: RENAL TRANSPLANT
     Dosage: UNK
     Route: 048
     Dates: start: 20081202, end: 20081215
  3. SIMULECT [Concomitant]
     Indication: RENAL TRANSPLANT
     Dosage: UNK
     Dates: start: 20081205, end: 20081205
  4. MEDROL [Concomitant]
  5. PARIET [Concomitant]
     Indication: GASTRITIS PROPHYLAXIS
  6. MIYA-BM [Concomitant]
  7. NEO-MINOPHAGEN C [Concomitant]
     Indication: ALLERGY PROPHYLAXIS

REACTIONS (18)
  - ABDOMINAL CAVITY DRAINAGE [None]
  - ASCITES [None]
  - BLADDER CATHETERISATION [None]
  - BLOOD CREATININE INCREASED [None]
  - CATHETER PLACEMENT [None]
  - DIALYSIS [None]
  - GLOMERULONEPHRITIS [None]
  - GLOMERULOSCLEROSIS [None]
  - HAEMODIALYSIS [None]
  - KIDNEY FIBROSIS [None]
  - KIDNEY TRANSPLANT REJECTION [None]
  - LYMPHOEDEMA [None]
  - NEPHROSCLEROSIS [None]
  - REFLUX NEPHROPATHY [None]
  - RENAL GRAFT LOSS [None]
  - RENAL TUBULAR ATROPHY [None]
  - URETERAL STENT INSERTION [None]
  - URINE OUTPUT DECREASED [None]
